FAERS Safety Report 5115212-1 (Version None)
Quarter: 2006Q3

REPORT INFORMATION
  Report Type: 
  Country: None (occurrence: None)
  Receive Date: 20060922
  Receipt Date: 20060913
  Transmission Date: 20061208
  Serious: Yes (Hospitalization)
  Sender: FDA-Public Use
  Company Number: 2006BI013171

PATIENT
  Age: 63 Year
  Sex: Female

DRUGS (1)
  1. AVONEX [Suspect]
     Indication: MULTIPLE SCLEROSIS
     Dosage: 30 UG; QW; IM
     Route: 030
     Dates: start: 19970401, end: 20060816

REACTIONS (11)
  - BRONCHITIS [None]
  - CORONARY ARTERY OCCLUSION [None]
  - FACIAL PAIN [None]
  - FALL [None]
  - HAEMORRHAGE [None]
  - HYPERHIDROSIS [None]
  - HYPERTENSION [None]
  - HYPOAESTHESIA [None]
  - ORAL INTAKE REDUCED [None]
  - PNEUMONIA [None]
  - SKELETAL INJURY [None]
